FAERS Safety Report 11055233 (Version 1)
Quarter: 2015Q2

REPORT INFORMATION
  Report Type: Spontaneous
  Country: US (occurrence: None)
  Receive Date: 20150421
  Receipt Date: 20150421
  Transmission Date: 20150821
  Serious: No
  Sender: FDA-Public Use
  Company Number: None

PATIENT
  Age: 57 Year
  Sex: Female
  Weight: 43.09 kg

DRUGS (3)
  1. HYDROXYZINE HCL [Suspect]
     Active Substance: HYDROXYZINE HYDROCHLORIDE
     Indication: INSOMNIA
     Dosage: 1-4 PILLS AT BEDTIME TAKEN BY MOUTH
     Route: 048
     Dates: start: 20150201, end: 20150401
  2. HYDROXYZINE HCL [Suspect]
     Active Substance: HYDROXYZINE HYDROCHLORIDE
     Indication: ANXIETY
     Dosage: 1-4 PILLS AT BEDTIME TAKEN BY MOUTH
     Route: 048
     Dates: start: 20150201, end: 20150401
  3. CITALOPRAM [Concomitant]
     Active Substance: CITALOPRAM HYDROBROMIDE

REACTIONS (2)
  - Abdominal distension [None]
  - Weight increased [None]

NARRATIVE: CASE EVENT DATE: 20150201
